FAERS Safety Report 15494266 (Version 1)
Quarter: 2018Q4

REPORT INFORMATION
  Report Type: Spontaneous
  Country: US (occurrence: US)
  Receive Date: 20181012
  Receipt Date: 20181012
  Transmission Date: 20190205
  Serious: No
  Sender: FDA-Public Use
  Company Number: US-PFIZER INC-2018401583

PATIENT
  Age: 59 Year
  Sex: Female
  Weight: 42.63 kg

DRUGS (7)
  1. LYRICA [Suspect]
     Active Substance: PREGABALIN
     Indication: NEURALGIA
     Dosage: 25 MG, 3X/DAY
     Route: 048
     Dates: start: 20180928
  2. LACTOSE [Suspect]
     Active Substance: LACTOSE
     Dosage: UNK
     Route: 048
     Dates: start: 20180928
  3. ESTROGEN [Concomitant]
     Active Substance: ESTROGENS
     Dosage: 0.05 MG, WEEKLY(PATCH APPLIED TO SKIN 1 TIME WEEKLY)
     Route: 061
  4. IBUPROFEN. [Concomitant]
     Active Substance: IBUPROFEN
     Indication: PAIN
     Dosage: UNK UNK, AS NEEDED
  5. LYRICA [Suspect]
     Active Substance: PREGABALIN
     Indication: FOOD POISONING
     Dosage: 25 MG, 2X/DAY(2 TIMES DAILY FOR 1 WEEK)
     Route: 048
     Dates: start: 20180928
  6. PROGESTERONE. [Concomitant]
     Active Substance: PROGESTERONE
     Dosage: 100 MG, 1X/DAY (1 TIME DAILY)
     Route: 048
  7. ASPIRIN [ACETYLSALICYLIC ACID] [Concomitant]
     Active Substance: ASPIRIN
     Indication: PAIN
     Dosage: UNK UNK, AS NEEDED

REACTIONS (6)
  - Reaction to excipient [Not Recovered/Not Resolved]
  - Underweight [Unknown]
  - Pelvic pain [Not Recovered/Not Resolved]
  - Condition aggravated [Not Recovered/Not Resolved]
  - Feeding disorder [Unknown]
  - Dysstasia [Unknown]

NARRATIVE: CASE EVENT DATE: 20180928
